FAERS Safety Report 6100924-3 (Version None)
Quarter: 2009Q1

REPORT INFORMATION
  Report Type: 
  Country: None (occurrence: None)
  Receive Date: 20090304
  Receipt Date: 20090223
  Transmission Date: 20090719
  Serious: Yes (Hospitalization)
  Sender: FDA-Public Use
  Company Number: JP-JNJFOC-20080906514

PATIENT
  Sex: Male
  Weight: 74 kg

DRUGS (9)
  1. INFLIXIMAB, RECOMBINANT [Suspect]
     Dosage: TOTAL OF 5 INFUSIONS ADMINISTERED
     Route: 042
  2. INFLIXIMAB, RECOMBINANT [Suspect]
     Route: 042
  3. INFLIXIMAB, RECOMBINANT [Suspect]
     Route: 042
  4. INFLIXIMAB, RECOMBINANT [Suspect]
     Route: 042
  5. INFLIXIMAB, RECOMBINANT [Suspect]
     Indication: COLITIS ULCERATIVE
     Route: 042
  6. IMURAN [Suspect]
     Indication: COLITIS ULCERATIVE
     Route: 048
  7. SESDEN [Concomitant]
     Indication: COLITIS ULCERATIVE
     Route: 048
  8. SALAZOPYRIN [Concomitant]
     Indication: COLITIS ULCERATIVE
     Route: 048
  9. PREDNISOLONE [Concomitant]
     Indication: COLITIS ULCERATIVE
     Route: 048

REACTIONS (1)
  - COLON CANCER [None]
